FAERS Safety Report 8643403 (Version 2)
Quarter: 2012Q4

REPORT INFORMATION
  Report Type: Report from Study
  Country: FR (occurrence: FR)
  Receive Date: 20120629
  Receipt Date: 20120919
  Transmission Date: 20130627
  Serious: Yes (Death, Other)
  Sender: FDA-Public Use
  Company Number: FR-PFIZER INC-2012152103

PATIENT
  Age: 36 Year
  Sex: Male
  Weight: 65 kg

DRUGS (7)
  1. ATGAM [Suspect]
     Dosage: 40 mg/kg (frequency not stated)
     Route: 042
     Dates: start: 20111122, end: 20111125
  2. SOLU-MEDROL [Concomitant]
     Dosage: UNK
  3. CYCLOSPORIN A [Concomitant]
     Dosage: 350 mg, 1x/day
  4. ZELITREX [Concomitant]
     Indication: PROPHYLAXIS
     Dosage: 500 mg, 1x/day
     Route: 048
     Dates: start: 201104
  5. VFEND [Concomitant]
     Indication: ASPERGILLOSIS
     Dosage: 200 mg, 2x/day
     Route: 048
     Dates: start: 201110
  6. CIFLOX [Concomitant]
     Indication: MASTOIDITIS
     Dosage: 750 mg, 2x/day
     Route: 048
     Dates: start: 201110
  7. CORTANCYL [Concomitant]
     Indication: FASCIITIS
     Dosage: 20 mg, 2x/day
     Route: 048
     Dates: start: 201104

REACTIONS (2)
  - Bacterial sepsis [Fatal]
  - Disease progression [Fatal]
